FAERS Safety Report 24060550 (Version 5)
Quarter: 2024Q4

REPORT INFORMATION
  Report Type: Spontaneous
  Country: DO (occurrence: DO)
  Receive Date: 20240708
  Receipt Date: 20241105
  Transmission Date: 20250114
  Serious: No
  Sender: PFIZER
  Company Number: DO-PFIZER INC-PV202400081509

PATIENT
  Age: 13 Year
  Sex: Male

DRUGS (1)
  1. GENOTROPIN [Suspect]
     Active Substance: SOMATROPIN
     Dosage: 1 MG, DAILY
     Dates: start: 202112

REACTIONS (2)
  - Device information output issue [Unknown]
  - Device mechanical issue [Unknown]
